FAERS Safety Report 25659896 (Version 1)
Quarter: 2025Q3

REPORT INFORMATION
  Report Type: Report from Study
  Country: IN (occurrence: IN)
  Receive Date: 20250808
  Receipt Date: 20250808
  Transmission Date: 20251021
  Serious: Yes (Death, Hospitalization)
  Sender: MYLAN
  Company Number: IN-MYLANLABS-2025M1065777

PATIENT

DRUGS (8)
  1. ACETAMINOPHEN [Suspect]
     Active Substance: ACETAMINOPHEN
     Indication: Pain
  2. ACETAMINOPHEN [Suspect]
     Active Substance: ACETAMINOPHEN
     Route: 065
  3. ACETAMINOPHEN [Suspect]
     Active Substance: ACETAMINOPHEN
     Route: 065
  4. ACETAMINOPHEN [Suspect]
     Active Substance: ACETAMINOPHEN
  5. PRAZOSIN [Suspect]
     Active Substance: PRAZOSIN
     Indication: Arthropod sting
  6. PRAZOSIN [Suspect]
     Active Substance: PRAZOSIN
     Route: 065
  7. PRAZOSIN [Suspect]
     Active Substance: PRAZOSIN
     Route: 065
  8. PRAZOSIN [Suspect]
     Active Substance: PRAZOSIN

REACTIONS (1)
  - Drug ineffective [Fatal]
